FAERS Safety Report 7420839-8 (Version None)
Quarter: 2011Q2

REPORT INFORMATION
  Report Type: 
  Country: None (occurrence: None)
  Receive Date: 20110418
  Receipt Date: 20110411
  Transmission Date: 20111010
  Serious: Yes (Other)
  Sender: FDA-Public Use
  Company Number: DE-PFIZER INC-2011078945

PATIENT
  Age: 2 Year
  Sex: Male

DRUGS (1)
  1. ZITHROMAX [Suspect]
     Indication: ACUTE TONSILLITIS
     Dosage: UNK
     Dates: start: 20110408, end: 20110410

REACTIONS (3)
  - ORAL PAIN [None]
  - DECREASED APPETITE [None]
  - MOUTH HAEMORRHAGE [None]
